FAERS Safety Report 6451295-4 (Version None)
Quarter: 2009Q4

REPORT INFORMATION
  Report Type: 
  Country: None (occurrence: None)
  Receive Date: 20091123
  Receipt Date: 20091119
  Transmission Date: 20100525
  Serious: Yes (Life-Threatening, Hospitalization, Other)
  Sender: FDA-Public Use
  Company Number: GB-PURDUE-GBR-2009-0005841

PATIENT
  Age: 69 Year
  Sex: Male

DRUGS (7)
  1. MST CONTINUS TABLETS 60 MG [Suspect]
     Indication: PANCREATITIS
     Dosage: 60 MG, BID
     Route: 048
     Dates: start: 20091102, end: 20091102
  2. CETRIZINE [Concomitant]
     Dosage: 10 MG, UNK
     Route: 048
  3. CREON                              /00014701/ [Concomitant]
     Indication: PANCREATITIS
     Dosage: 10000 IU, TID
     Route: 048
  4. FOLIC ACID [Concomitant]
     Dosage: 5 MG, DAILY
     Route: 048
  5. SERETIDE                           /01420901/ [Concomitant]
     Dosage: 1 DF, BID
     Route: 065
     Dates: start: 20091102
  6. TIOTROPIUM BROMIDE [Concomitant]
     Dosage: 18 MG, DAILY
     Route: 065
     Dates: start: 20091102
  7. VITAMIN B                          /90046501/ [Concomitant]
     Dosage: 10 MG, UNK
     Route: 048

REACTIONS (3)
  - PNEUMONIA ASPIRATION [None]
  - RESPIRATORY FAILURE [None]
  - SYNCOPE [None]
